FAERS Safety Report 8530883-5 (Version None)
Quarter: 2012Q3

REPORT INFORMATION
  Report Type: 
  Country: None (occurrence: None)
  Receive Date: 20120723
  Receipt Date: 20120712
  Transmission Date: 20120928
  Serious: Yes (Hospitalization)
  Sender: FDA-Public Use
  Company Number: US-AMGEN-USASP2012044428

PATIENT
  Age: 53 Year
  Sex: Female
  Weight: 48.526 kg

DRUGS (12)
  1. KIONEX [Concomitant]
     Dosage: 3400 G, UNK
     Route: 048
     Dates: start: 20111101, end: 20111101
  2. AMLODIPINE BESYLATE [Concomitant]
     Indication: RENAL DISORDER
     Dosage: 10 MG, QD
     Route: 048
     Dates: start: 20070101
  3. PROCRIT [Suspect]
     Dosage: 10000 IU, QMO
     Dates: start: 20100101, end: 20110101
  4. VITAMIN D [Concomitant]
     Indication: RENAL DISORDER
     Dosage: 50000 IU, Q3WK
     Route: 048
     Dates: start: 20070101
  5. GABAPENTIN [Concomitant]
     Indication: RENAL DISORDER
     Dosage: 400 MG, QD
     Route: 048
     Dates: start: 20070101
  6. PROCRIT [Suspect]
     Indication: RENAL DISORDER
     Dosage: 10000 IU, QWK
     Dates: start: 20110101
  7. FERROUS SULFATE TAB [Concomitant]
     Indication: RENAL DISORDER
     Dosage: 325 MG, TID
     Route: 048
     Dates: start: 20070101
  8. KIONEX [Concomitant]
     Dosage: 454 G, UNK
     Route: 048
     Dates: start: 20111101
  9. SODIUM BICARBONATE [Concomitant]
     Indication: RENAL DISORDER
     Dosage: 650 MG, TID
     Route: 048
     Dates: start: 20070101
  10. DILANTIN [Concomitant]
     Indication: CONVULSION
     Dosage: 100 MG, TID
     Route: 048
     Dates: start: 20040101
  11. CALCIUM ACETATE [Concomitant]
     Indication: RENAL DISORDER
     Dosage: 667 MG, QD
     Route: 048
     Dates: start: 20070101
  12. ZEMPLAR [Concomitant]
     Indication: RENAL DISORDER
     Dosage: 1 MG, QD
     Route: 048
     Dates: start: 20070101

REACTIONS (10)
  - BLOOD POTASSIUM DECREASED [None]
  - BURNING SENSATION [None]
  - MUSCLE SPASMS [None]
  - MOBILITY DECREASED [None]
  - PAIN [None]
  - INCORRECT DRUG DOSAGE FORM ADMINISTERED [None]
  - WALKING AID USER [None]
  - THERAPY REGIMEN CHANGED [None]
  - WHEELCHAIR USER [None]
  - MUSCLE TIGHTNESS [None]
